FAERS Safety Report 15663629 (Version 1)
Quarter: 2018Q4

REPORT INFORMATION
  Report Type: Spontaneous
  Country: US (occurrence: US)
  Receive Date: 20181128
  Receipt Date: 20181128
  Transmission Date: 20190205
  Serious: No
  Sender: FDA-Public Use
  Company Number: US-AUROBINDO-AUR-APL-2017-43371

PATIENT
  Sex: Female

DRUGS (1)
  1. GABAPENTIN TABLETS [Suspect]
     Active Substance: GABAPENTIN
     Indication: NEUROPATHY PERIPHERAL
     Dosage: 300 MG, TWO TIMES A DAY
     Route: 048

REACTIONS (2)
  - Malaise [Unknown]
  - Feeling abnormal [Unknown]
